FAERS Safety Report 24188228 (Version 1)
Quarter: 2024Q3

REPORT INFORMATION
  Report Type: Spontaneous
  Country: US (occurrence: US)
  Receive Date: 20240808
  Receipt Date: 20240808
  Transmission Date: 20241017
  Serious: Yes (Other)
  Sender: OTSUKA
  Company Number: US-OTSUKA-2024_010554

PATIENT
  Age: 83 Year
  Sex: Female

DRUGS (1)
  1. ARIPIPRAZOLE [Suspect]
     Active Substance: ARIPIPRAZOLE
     Indication: Bipolar disorder
     Dosage: 50 MG
     Route: 065

REACTIONS (3)
  - Tardive dyskinesia [Unknown]
  - Drooling [Unknown]
  - Overdose [Unknown]
